FAERS Safety Report 8075789-3 (Version None)
Quarter: 2012Q1

REPORT INFORMATION
  Report Type: 
  Country: None (occurrence: None)
  Receive Date: 20120127
  Receipt Date: 20120116
  Transmission Date: 20120608
  Serious: Yes (Hospitalization, Other)
  Sender: FDA-Public Use
  Company Number: US-ELI_LILLY_AND_COMPANY-US201108002593

PATIENT
  Sex: Female
  Weight: 63 kg

DRUGS (14)
  1. FORTEO [Suspect]
     Indication: OSTEOPOROSIS
     Dosage: 20 UG, QD
  2. TEGRETOL [Concomitant]
     Dosage: 200 MG, UNK
  3. FORTEO [Suspect]
     Dosage: 20 UG, QD
     Dates: end: 20110922
  4. LEVOXYL [Concomitant]
     Dosage: 50 MG, QD
  5. ZEMPLAR [Concomitant]
     Dosage: 2 UG, QD
  6. ZYRTEC [Concomitant]
     Dosage: 10 MG, QD
  7. LIPITOR [Concomitant]
     Dosage: 20 MG, QD
  8. ASPIRIN [Concomitant]
     Dosage: 81 MG, QD
  9. PLAQUENIL [Concomitant]
     Dosage: 200 MG, BID
  10. COREG [Concomitant]
     Dosage: UNK
  11. ATACAND [Concomitant]
     Dosage: 8 MG, BID
  12. LASIX [Concomitant]
     Dosage: 40 MG, QD
  13. CIPROFLOXACIN [Concomitant]
     Dosage: 500 MG, BID
  14. VICODIN [Concomitant]
     Indication: PAIN
     Dosage: UNK UNK, PRN

REACTIONS (17)
  - BLOOD URINE PRESENT [None]
  - CALCULUS URETERIC [None]
  - NEPHROLITHIASIS [None]
  - BLOOD PRESSURE ABNORMAL [None]
  - HAEMOGLOBIN DECREASED [None]
  - GLOMERULAR FILTRATION RATE ABNORMAL [None]
  - RENAL DISORDER [None]
  - FRACTURE [None]
  - PAIN [None]
  - CHEST PAIN [None]
  - RESPIRATORY DISORDER [None]
  - HAEMATOCHEZIA [None]
  - RENAL HAEMORRHAGE [None]
  - CARDIAC DISORDER [None]
  - HAEMATOCRIT DECREASED [None]
  - PYREXIA [None]
  - GASTROINTESTINAL HAEMORRHAGE [None]
